FAERS Safety Report 14001381 (Version 1)
Quarter: 2017Q3

REPORT INFORMATION
  Report Type: Spontaneous
  Country: US (occurrence: US)
  Receive Date: 20170922
  Receipt Date: 20170922
  Transmission Date: 20171128
  Serious: No
  Sender: FDA-Public Use
  Company Number: US-LPDUSPRD-20160777

PATIENT
  Sex: Female

DRUGS (2)
  1. LIDOCAINE. [Suspect]
     Active Substance: LIDOCAINE
     Dosage: DOSE NOT PROVIDED
     Route: 014
  2. BETAMETHASONE SODIUM PHOS/BETAMETHASONE ACETATE INJ SUSP, USP (40042-0 [Suspect]
     Active Substance: BETAMETHASONE ACETATE\BETAMETHASONE SODIUM PHOSPHATE
     Dosage: DOSE NOT PROVIDED
     Route: 014
     Dates: start: 20160826, end: 20160826

REACTIONS (3)
  - Feeling hot [Unknown]
  - Erythema [Unknown]
  - Skin warm [Unknown]

NARRATIVE: CASE EVENT DATE: 201608
